FAERS Safety Report 8133295-1 (Version None)
Quarter: 2012Q1

REPORT INFORMATION
  Report Type: 
  Country: None (occurrence: None)
  Receive Date: 20120213
  Receipt Date: 20120207
  Transmission Date: 20120608
  Serious: Yes (Other)
  Sender: FDA-Public Use
  Company Number: US-AMGEN-USASP2011070027

PATIENT
  Age: 7 Week
  Sex: Male
  Weight: 2.322 kg

DRUGS (6)
  1. MUCINEX [Concomitant]
     Dosage: UNK UNK, PRN
     Route: 064
  2. PREDNISONE TAB [Concomitant]
     Dosage: 40 MG, UNK
     Route: 064
  3. ENBREL [Suspect]
     Dosage: 50 MG, QWK
     Route: 064
     Dates: start: 20040601, end: 20110223
  4. PRENATAL VITAMINS                  /01549301/ [Concomitant]
     Dosage: UNK
     Route: 064
  5. RENATA [Concomitant]
     Dosage: UNK UNK, QD
     Route: 064
     Dates: start: 20110223
  6. NASONEX [Concomitant]
     Dosage: UNK UNK, QD
     Route: 064
     Dates: start: 20110321

REACTIONS (2)
  - PREMATURE BABY [None]
  - INGUINAL HERNIA [None]
